FAERS Safety Report 7385498-1 (Version None)
Quarter: 2011Q1

REPORT INFORMATION
  Report Type: 
  Country: None (occurrence: None)
  Receive Date: 20110330
  Receipt Date: 20110326
  Transmission Date: 20110831
  Serious: Yes (Hospitalization)
  Sender: FDA-Public Use
  Company Number: BN-BRISTOL-MYERS SQUIBB COMPANY-15628191

PATIENT
  Age: 47 Year
  Sex: Female

DRUGS (5)
  1. METFORMIN HCL [Suspect]
  2. AMLODIPINE [Suspect]
  3. GLICLAZIDE [Suspect]
  4. PERINDOPRIL [Suspect]
  5. ASPIRIN [Suspect]
     Dosage: SOLUABLE ASPIRIN

REACTIONS (4)
  - INTESTINAL HAEMATOMA [None]
  - DUODENAL ULCER [None]
  - BILE DUCT OBSTRUCTION [None]
  - CHOLECYSTITIS ACUTE [None]
